FAERS Safety Report 7423878-6 (Version None)
Quarter: 2011Q2

REPORT INFORMATION
  Report Type: 
  Country: None (occurrence: None)
  Receive Date: 20110411
  Receipt Date: 20110325
  Transmission Date: 20111010
  Serious: Yes (Hospitalization)
  Sender: FDA-Public Use
  Company Number: 024547

PATIENT
  Sex: Female

DRUGS (14)
  1. CERTOLIZUMAB PEGOL (CERTOLIZUMAB PEGOL) [Suspect]
     Indication: RHEUMATOID ARTHRITIS
     Dosage: 400 MG 1X/2 WEEKS, 400MG 1X/4 WEEKS, 200 MG 1/2 WEEKS,  SUBCUTANEOUS
     Route: 058
     Dates: start: 20090928, end: 20101203
  2. CERTOLIZUMAB PEGOL (CERTOLIZUMAB PEGOL) [Suspect]
     Indication: RHEUMATOID ARTHRITIS
     Dosage: 400 MG 1X/2 WEEKS, 400MG 1X/4 WEEKS, 200 MG 1/2 WEEKS,  SUBCUTANEOUS
     Route: 058
     Dates: start: 20110318
  3. CERTOLIZUMAB PEGOL (CERTOLIZUMAB PEGOL) [Suspect]
     Indication: RHEUMATOID ARTHRITIS
     Dosage: 400 MG 1X/2 WEEKS, 400MG 1X/4 WEEKS, 200 MG 1/2 WEEKS,  SUBCUTANEOUS
     Route: 058
     Dates: start: 20090316
  4. CERTOLIZUMAB PEGOL (CERTOLIZUMAB PEGOL) [Suspect]
     Indication: RHEUMATOID ARTHRITIS
     Dosage: 400 MG 1X/2 WEEKS, 400MG 1X/4 WEEKS, 200 MG 1/2 WEEKS,  SUBCUTANEOUS
     Route: 058
     Dates: start: 20110121, end: 20110121
  5. FOLIC ACID [Concomitant]
  6. AMLODIPINE BESYLATE [Concomitant]
  7. CELECOXIB [Concomitant]
  8. DICLOFENAC SODIUM [Concomitant]
  9. TROXIPIDE [Concomitant]
  10. KETOPROFEN [Concomitant]
  11. OFLOXACIN [Concomitant]
  12. METHOTREXATE [Concomitant]
  13. FLUOROMETHOLONE [Concomitant]
  14. PREDNISOLONE [Concomitant]

REACTIONS (6)
  - VIITH NERVE PARALYSIS [None]
  - CHOLESTEATOMA [None]
  - CONDITION AGGRAVATED [None]
  - CONSTIPATION [None]
  - RHEUMATOID ARTHRITIS [None]
  - OTITIS MEDIA CHRONIC [None]
